FAERS Safety Report 13822065 (Version 2)
Quarter: 2019Q1

REPORT INFORMATION
  Report Type: Spontaneous
  Country: US (occurrence: US)
  Receive Date: 20170801
  Receipt Date: 20190304
  Transmission Date: 20190417
  Serious: No
  Sender: FDA-Public Use
  Company Number: US-PFIZER INC-2017330730

PATIENT
  Age: 59 Year
  Sex: Female

DRUGS (1)
  1. IBRANCE [Suspect]
     Active Substance: PALBOCICLIB
     Indication: BREAST CANCER
     Dosage: 125 MG, CYCLIC (EVERY DAY FOR 21 DAYS ON, 7 DAYS OFF 1 HOUR BEFORE OR 2 HOURS AFTER A MEAL)
     Route: 048
     Dates: start: 201705

REACTIONS (2)
  - Neoplasm progression [Unknown]
  - Decreased appetite [Unknown]
